FAERS Safety Report 10480362 (Version 4)
Quarter: 2015Q1

REPORT INFORMATION
  Report Type: Spontaneous
  Country: US (occurrence: US)
  Receive Date: 20140929
  Receipt Date: 20150108
  Transmission Date: 20150720
  Serious: Yes (Other)
  Sender: FDA-Public Use
  Company Number: US-JNJFOC-20140915801

PATIENT
  Sex: Female
  Weight: 56.7 kg

DRUGS (3)
  1. RISPERDAL [Suspect]
     Active Substance: RISPERIDONE
     Indication: SCHIZOAFFECTIVE DISORDER
     Route: 048
     Dates: start: 20080831
  2. ZOLOFT [Concomitant]
     Active Substance: SERTRALINE HYDROCHLORIDE
     Indication: SUICIDAL IDEATION
     Route: 065
  3. RISPERDAL [Suspect]
     Active Substance: RISPERIDONE
     Indication: PSYCHOTIC DISORDER
     Route: 048
     Dates: start: 20080831

REACTIONS (15)
  - Anaemia [Recovering/Resolving]
  - Dizziness [Recovering/Resolving]
  - Tremor [Recovered/Resolved]
  - Depression [Recovering/Resolving]
  - Weight increased [Recovered/Resolved]
  - Suicidal ideation [Recovered/Resolved]
  - Muscle spasms [Unknown]
  - Blood cholesterol increased [Recovered/Resolved]
  - Muscle twitching [Unknown]
  - Wrong technique in drug usage process [Unknown]
  - Coordination abnormal [Recovered/Resolved]
  - Iron binding capacity total decreased [Recovering/Resolving]
  - Breast enlargement [Recovered/Resolved]
  - Akathisia [Unknown]
  - Thyroid function test abnormal [Recovered/Resolved]
